FAERS Safety Report 15271516 (Version 1)
Quarter: 2018Q3

REPORT INFORMATION
  Report Type: Spontaneous
  Country: DK (occurrence: DK)
  Receive Date: 20180813
  Receipt Date: 20180813
  Transmission Date: 20181010
  Serious: Yes (Hospitalization)
  Sender: FDA-Public Use
  Company Number: DK-PFIZER INC-2017319576

PATIENT
  Age: 46 Year
  Sex: Female
  Weight: 87 kg

DRUGS (10)
  1. DOCETAXEL HOSPIRA [Suspect]
     Active Substance: DOCETAXEL
     Dosage: UNK
     Route: 042
     Dates: start: 20150127
  2. EPIRUBICIN ACTAVIS [Suspect]
     Active Substance: EPIRUBICIN
     Dosage: 1 DF, UNK
     Dates: start: 20141125
  3. EPIRUBICIN ACTAVIS [Suspect]
     Active Substance: EPIRUBICIN
     Dosage: 1 DF, UNK
     Dates: start: 20141216
  4. SENDOXAN [Suspect]
     Active Substance: CYCLOPHOSPHAMIDE
     Indication: PROPHYLAXIS
     Dosage: 1 DF, UNK DOSE: TREATED EVERY THIRD WEEK
     Dates: start: 20141104, end: 20150217
  5. ARIMIDEX [Suspect]
     Active Substance: ANASTROZOLE
     Indication: INVASIVE DUCTAL BREAST CARCINOMA
     Dosage: UNK
     Route: 048
     Dates: start: 201603
  6. ZOLADEX [Suspect]
     Active Substance: GOSERELIN ACETATE
     Indication: INVASIVE DUCTAL BREAST CARCINOMA
     Dosage: UNK
     Route: 058
     Dates: start: 201504
  7. TAXOTERE [Suspect]
     Active Substance: DOCETAXEL
     Indication: PROPHYLAXIS
     Dosage: UNK
  8. DOCETAXEL HOSPIRA [Suspect]
     Active Substance: DOCETAXEL
     Indication: INVASIVE DUCTAL BREAST CARCINOMA
     Dosage: UNK
     Route: 042
     Dates: start: 20150106
  9. EPIRUBICIN ACTAVIS [Suspect]
     Active Substance: EPIRUBICIN
     Indication: PROPHYLAXIS
     Dosage: 1 DF, UNK
     Dates: start: 20141104
  10. DOCETAXEL HOSPIRA [Suspect]
     Active Substance: DOCETAXEL
     Dosage: UNK
     Route: 042
     Dates: start: 20150217

REACTIONS (4)
  - Arthralgia [Not Recovered/Not Resolved]
  - Myalgia [Unknown]
  - Pain in extremity [Not Recovered/Not Resolved]
  - Gait disturbance [Not Recovered/Not Resolved]

NARRATIVE: CASE EVENT DATE: 20150111
